FAERS Safety Report 23225922 (Version 1)
Quarter: 2023Q4

REPORT INFORMATION
  Report Type: Spontaneous
  Country: PL (occurrence: PL)
  Receive Date: 20231124
  Receipt Date: 20231124
  Transmission Date: 20240110
  Serious: Yes (Other)
  Sender: FDA-Public Use
  Company Number: PL-AstraZeneca-2023A263051

PATIENT
  Age: 6 Month
  Sex: Female
  Weight: 4.8 kg

DRUGS (4)
  1. SYNAGIS [Suspect]
     Active Substance: PALIVIZUMAB
     Indication: Antiviral prophylaxis
     Dosage: 15.0MG/KG UNKNOWN
     Route: 030
     Dates: start: 20230928
  2. SIDERAL GOCCE [Concomitant]
     Indication: Product used for unknown indication
  3. INNOVITUM B [Concomitant]
     Indication: Anaemia
  4. VITAMIN D3 [Concomitant]
     Active Substance: CHOLECALCIFEROL
     Indication: Product used for unknown indication

REACTIONS (3)
  - Erythema [Unknown]
  - Dyspnoea [Unknown]
  - Injection site erythema [Unknown]
